FAERS Safety Report 5304539-6 (Version None)
Quarter: 2007Q2

REPORT INFORMATION
  Report Type: 
  Country: None (occurrence: None)
  Receive Date: 20070417
  Receipt Date: 20070417
  Transmission Date: 20071010
  Serious: No
  Sender: FDA-Public Use
  Company Number: None

PATIENT
  Age: 66 Year
  Sex: Male

DRUGS (2)
  1. DEFINITY [Suspect]
     Indication: CARDIAC VENTRICULAR DISORDER
     Dosage: 0.3 ML + 0.1 + 0.1 TOTAL 0.5 ML. IV
     Route: 042
     Dates: start: 20070404
  2. DEFINITY [Suspect]
     Indication: ECHOCARDIOGRAM
     Dosage: 0.3 ML + 0.1 + 0.1 TOTAL 0.5 ML. IV
     Route: 042
     Dates: start: 20070404

REACTIONS (1)
  - BACK PAIN [None]
